FAERS Safety Report 10236503 (Version 7)
Quarter: 2015Q2

REPORT INFORMATION
  Report Type: Spontaneous
  Country: US (occurrence: US)
  Receive Date: 20140613
  Receipt Date: 20150504
  Transmission Date: 20150821
  Serious: Yes (Other)
  Sender: FDA-Public Use
  Company Number: US-PFIZER INC-2014160433

PATIENT
  Age: 71 Year
  Sex: Female
  Weight: 64 kg

DRUGS (7)
  1. FOLIC ACID. [Concomitant]
     Active Substance: FOLIC ACID
     Dosage: 1 MG, UNK
  2. CALCIUM [Concomitant]
     Active Substance: CALCIUM
     Dosage: UNK
     Dates: start: 2014
  3. OMEPRAZOLE. [Concomitant]
     Active Substance: OMEPRAZOLE
     Dosage: 20 MG, UNK
  4. VITAMIN D [Concomitant]
     Active Substance: CHOLECALCIFEROL
     Dosage: 50000 IU
     Dates: start: 2014
  5. TEGRETOL [Concomitant]
     Active Substance: CARBAMAZEPINE
     Dosage: UNK
     Dates: start: 201309, end: 201405
  6. SUTENT [Suspect]
     Active Substance: SUNITINIB MALATE
     Indication: RENAL CANCER
     Dosage: 50 MG, 1X/DAY CYCLIC
     Dates: start: 20140527, end: 20140606
  7. SUTENT [Suspect]
     Active Substance: SUNITINIB MALATE
     Dosage: 50 MG, 1X/DAY CYCLIC
     Dates: start: 20140614, end: 20140828

REACTIONS (5)
  - Dysgeusia [Recovered/Resolved]
  - Fatigue [Recovered/Resolved]
  - Blood count abnormal [Recovered/Resolved]
  - Tooth disorder [Recovered/Resolved]
  - Blood count abnormal [Recovered/Resolved]

NARRATIVE: CASE EVENT DATE: 2014
